FAERS Safety Report 21656252 (Version 1)
Quarter: 2022Q4

REPORT INFORMATION
  Report Type: Other
  Country: US (occurrence: None)
  Receive Date: 20221129
  Receipt Date: 20221129
  Transmission Date: 20230113
  Serious: Yes (Hospitalization)
  Sender: FDA-Public Use
  Company Number: US-ROCHE-3223134

PATIENT
  Age: 79 Year
  Sex: Male

DRUGS (1)
  1. OCREVUS [Suspect]
     Active Substance: OCRELIZUMAB
     Indication: Multiple sclerosis
     Dosage: ONGOING: NO?INFUSE 300 MG EVERY 2 WEEKS X 2 AND THEN INFUSE 600 MG EVERY 6 MONTHS
     Route: 042
     Dates: start: 20200617, end: 20220613

REACTIONS (1)
  - COVID-19 [Recovered/Resolved]
